FAERS Safety Report 19861689 (Version 1)
Quarter: 2021Q3

REPORT INFORMATION
  Report Type: Report from Study
  Country: US (occurrence: US)
  Receive Date: 20210920
  Receipt Date: 20210920
  Transmission Date: 20211014
  Serious: Yes (Hospitalization)
  Sender: FDA-Public Use
  Company Number: US-PFIZER INC-202101170348

PATIENT
  Age: 7 Year
  Sex: Male
  Weight: 22.1 kg

DRUGS (4)
  1. LORLATINIB [Suspect]
     Active Substance: LORLATINIB
     Indication: NEUROBLASTOMA
     Dosage: 105 MG, 1X/DAY
     Route: 048
     Dates: start: 20210816
  2. TOPOTECAN HYDROCHLORIDE. [Suspect]
     Active Substance: TOPOTECAN HYDROCHLORIDE
     Indication: NEUROBLASTOMA
     Dosage: 0.675 MG, 1X/DAY
     Route: 042
     Dates: start: 20210816, end: 20210820
  3. PEGFILGRASTIM [Concomitant]
     Active Substance: PEGFILGRASTIM
     Indication: NEUROBLASTOMA
     Dosage: 2 MG, 1X/DAY
     Route: 058
     Dates: start: 20210821, end: 20210821
  4. CYCLOPHOSPHAMIDE. [Suspect]
     Active Substance: CYCLOPHOSPHAMIDE
     Indication: NEUROBLASTOMA
     Dosage: 222.6 MG, 1X/DAY
     Route: 042
     Dates: start: 20210816, end: 20210820

REACTIONS (1)
  - Febrile neutropenia [Recovered/Resolved]

NARRATIVE: CASE EVENT DATE: 20210827
